FAERS Safety Report 9203755 (Version 1)
Quarter: 2013Q1

REPORT INFORMATION
  Report Type: Spontaneous
  Country: US (occurrence: None)
  Receive Date: 20120709
  Receipt Date: 20120709
  Transmission Date: 20140127
  Serious: Yes (Other)
  Sender: FDA-Public Use
  Company Number: PHEH2011US01211

PATIENT
  Age: 82 Year
  Sex: Male

DRUGS (1)
  1. GLEEVEC (IMATINIB) [Suspect]
     Route: 048
     Dates: start: 201106, end: 201108

REACTIONS (3)
  - Renal impairment [None]
  - Muscle spasms [None]
  - Oedema peripheral [None]
